FAERS Safety Report 10065140 (Version 1)
Quarter: 2014Q2

REPORT INFORMATION
  Report Type: Spontaneous
  Country: US (occurrence: US)
  Receive Date: 20140408
  Receipt Date: 20140408
  Transmission Date: 20141212
  Serious: Yes (Other)
  Sender: FDA-Public Use
  Company Number: US-BAYER-2014-046597

PATIENT
  Age: 76 Year
  Sex: Male

DRUGS (4)
  1. CIPROFLOXACIN [Suspect]
     Indication: DIVERTICULITIS
  2. METRONIDAZOLE [Suspect]
     Indication: DIVERTICULITIS
     Dosage: UNK
  3. VANCOMYCIN [Suspect]
     Indication: DIARRHOEA
     Dosage: 125 MG, QD
     Route: 048
  4. VANCOMYCIN [Suspect]
     Indication: DIARRHOEA
     Dosage: 250 MG, QID
     Route: 048

REACTIONS (1)
  - Clostridium difficile colitis [Recovered/Resolved]
